FAERS Safety Report 16917993 (Version 5)
Quarter: 2020Q4

REPORT INFORMATION
  Report Type: Spontaneous
  Country: US (occurrence: US)
  Receive Date: 20191015
  Receipt Date: 20201225
  Transmission Date: 20210113
  Serious: Yes (Life-Threatening, Hospitalization, Other)
  Sender: FDA-Public Use
  Company Number: US-SHIRE-US201933357

PATIENT
  Age: 46 Year
  Sex: Female

DRUGS (11)
  1. NATPARA (PARATHYROID HORMONE) [Suspect]
     Active Substance: PARATHYROID HORMONE
     Indication: HYPOCALCAEMIA
     Dosage: 50 MICROGRAM, 1X/DAY:QD (REST OF THE WEEK)
     Route: 050
  2. NATPARA (PARATHYROID HORMONE) [Suspect]
     Active Substance: PARATHYROID HORMONE
     Indication: THYROID CANCER
     Dosage: 75 MICROGRAM, QD
     Route: 050
     Dates: start: 20151027
  3. CALCIUM [Concomitant]
     Active Substance: CALCIUM
     Indication: PRODUCT USED FOR UNKNOWN INDICATION
  4. NATPARA (PARATHYROID HORMONE) [Suspect]
     Active Substance: PARATHYROID HORMONE
     Indication: POST PROCEDURAL HYPOTHYROIDISM
     Dosage: 50 MICROGRAM, 2X/DAY:BID (3 DAYS A WEEK)
     Route: 050
     Dates: start: 20151027
  5. NATPARA (PARATHYROID HORMONE) [Suspect]
     Active Substance: PARATHYROID HORMONE
     Indication: HYPOCALCAEMIA
     Dosage: 50 MICROGRAM, 1X/DAY:QD (REST OF THE WEEK)
     Route: 050
  6. NATPARA (PARATHYROID HORMONE) [Suspect]
     Active Substance: PARATHYROID HORMONE
     Indication: THYROID CANCER
     Dosage: 75 MICROGRAM, QD
     Route: 050
     Dates: start: 20151027
  7. NATPARA (PARATHYROID HORMONE) [Suspect]
     Active Substance: PARATHYROID HORMONE
     Indication: POST PROCEDURAL HYPOTHYROIDISM
     Dosage: 50 MICROGRAM, 2X/DAY:BID (3 DAYS A WEEK)
     Route: 050
     Dates: start: 20151027
  8. NATPARA (PARATHYROID HORMONE) [Suspect]
     Active Substance: PARATHYROID HORMONE
     Indication: HYPOCALCAEMIA
     Dosage: 50 MICROGRAM, 1X/DAY:QD (REST OF THE WEEK)
     Route: 050
  9. NATPARA (PARATHYROID HORMONE) [Suspect]
     Active Substance: PARATHYROID HORMONE
     Indication: THYROID CANCER
     Dosage: 75 MICROGRAM, QD
     Route: 050
     Dates: start: 20151027
  10. NATPARA (PARATHYROID HORMONE) [Suspect]
     Active Substance: PARATHYROID HORMONE
     Indication: POST PROCEDURAL HYPOTHYROIDISM
     Dosage: 50 MICROGRAM, 2X/DAY:BID (3 DAYS A WEEK)
     Route: 050
     Dates: start: 20151027
  11. CALCITRIOL. [Concomitant]
     Active Substance: CALCITRIOL
     Indication: PRODUCT USED FOR UNKNOWN INDICATION

REACTIONS (3)
  - Recalled product [Unknown]
  - Off label use [Not Recovered/Not Resolved]
  - Hypocalcaemia [Recovered/Resolved]

NARRATIVE: CASE EVENT DATE: 20190305
